FAERS Safety Report 4492380-6 (Version None)
Quarter: 2004Q4

REPORT INFORMATION
  Report Type: 
  Country: None (occurrence: None)
  Receive Date: 20041029
  Receipt Date: 20041021
  Transmission Date: 20050328
  Serious: Yes (Other)
  Sender: FDA-Public Use
  Company Number: 20206

PATIENT
  Age: 82 Year
  Sex: Male
  Weight: 83.4619 kg

DRUGS (14)
  1. NIASPAN [Suspect]
     Indication: PLATELET COUNT DECREASED
     Dosage: 500 MG QHS PO
     Route: 048
     Dates: start: 20031201, end: 20040615
  2. ZOCOR [Suspect]
     Indication: BLOOD CHOLESTEROL INCREASED
     Dosage: UNK
     Route: 065
     Dates: end: 20040720
  3. ALTACE [Concomitant]
  4. COREG [Concomitant]
  5. PLAVIX [Concomitant]
  6. IMDUR [Concomitant]
  7. GLUCOPHAGE [Concomitant]
  8. DIGOXIN [Concomitant]
  9. GLYBURIDE [Concomitant]
  10. ALDACTONE [Concomitant]
  11. PROTONIX [Concomitant]
  12. SKELAXIN [Concomitant]
  13. SYNTHROID [Concomitant]
  14. ASPIRIN [Concomitant]

REACTIONS (1)
  - HEPATIC NEOPLASM MALIGNANT [None]
